FAERS Safety Report 8152959-7 (Version None)
Quarter: 2012Q1

REPORT INFORMATION
  Report Type: 
  Country: None (occurrence: None)
  Receive Date: 20120103
  Receipt Date: 20111031
  Transmission Date: 20120608
  Serious: No
  Sender: FDA-Public Use
  Company Number: AE-2011-002930

PATIENT
  Age: 53 Year
  Sex: Female
  Weight: 65 kg

DRUGS (3)
  1. RIBAVIRIN [Concomitant]
  2. PEGASYS [Concomitant]
  3. INCIVEK [Suspect]
     Dosage: 93.75 MG (750 MG,1 IN 8 D)
     Dates: start: 20110830

REACTIONS (7)
  - DEPRESSION [None]
  - DRY MOUTH [None]
  - RASH PRURITIC [None]
  - STOMATITIS [None]
  - FATIGUE [None]
  - ANAEMIA [None]
  - BLOOD THYROID STIMULATING HORMONE INCREASED [None]
